FAERS Safety Report 9095085 (Version 1)
Quarter: 2013Q1

REPORT INFORMATION
  Report Type: Spontaneous
  Country: US (occurrence: None)
  Receive Date: 20130215
  Receipt Date: 20130215
  Transmission Date: 20140127
  Serious: Yes (Other)
  Sender: FDA-Public Use
  Company Number: None

PATIENT
  Age: 45 Year
  Sex: Female
  Weight: 69.4 kg

DRUGS (1)
  1. CARIMUNE - NEW PRODUCT TO PATIENT [Suspect]
     Indication: HYPOGAMMAGLOBULINAEMIA
     Dosage: 18 GM  IV  QMONTH
     Route: 042

REACTIONS (3)
  - Chest discomfort [None]
  - Dyspnoea [None]
  - Infusion related reaction [None]
